FAERS Safety Report 20429577 (Version 1)
Quarter: 2022Q1

REPORT INFORMATION
  Report Type: Report from Study
  Country: FR (occurrence: FR)
  Receive Date: 20220204
  Receipt Date: 20220204
  Transmission Date: 20220423
  Serious: Yes (Death)
  Sender: FDA-Public Use
  Company Number: FR-SERVIER-S19012048

PATIENT

DRUGS (6)
  1. ONCASPAR [Suspect]
     Active Substance: PEGASPARGASE
     Indication: Acute lymphocytic leukaemia
     Dosage: 1237.5 IU (D12)
     Route: 042
     Dates: start: 20191021, end: 20191021
  2. VINCRISTINE [Suspect]
     Active Substance: VINCRISTINE
     Dosage: 0.7 MG, ON D8
     Route: 042
     Dates: start: 20191017, end: 20191017
  3. DOXORUBICIN HYDROCHLORIDE [Suspect]
     Active Substance: DOXORUBICIN HYDROCHLORIDE
     Indication: Acute lymphocytic leukaemia
     Dosage: 19.5 MG ON D8
     Route: 042
     Dates: start: 20191017, end: 20191017
  4. TN UNSPECIFIED [Concomitant]
     Indication: Acute lymphocytic leukaemia
     Dosage: 8 MG, ON D1, D4, D9
     Route: 037
     Dates: start: 20191010, end: 20191018
  5. TN UNSPECIFIED [Concomitant]
     Indication: Acute lymphocytic leukaemia
     Dosage: 20 MG, ON D1, D4, D9
     Route: 037
     Dates: start: 20191010, end: 20191018
  6. TN UNSPECIFIED [Concomitant]
     Indication: Acute lymphocytic leukaemia
     Dosage: 10 MG,  ON D4, D9
     Route: 037
     Dates: start: 20191013, end: 20191018

REACTIONS (1)
  - Pseudomonas infection [Fatal]

NARRATIVE: CASE EVENT DATE: 20191024
